FAERS Safety Report 5837647-1 (Version None)
Quarter: 2008Q3

REPORT INFORMATION
  Report Type: 
  Country: None (occurrence: None)
  Receive Date: 20080807
  Receipt Date: 20080731
  Transmission Date: 20090109
  Serious: Yes (Other)
  Sender: FDA-Public Use
  Company Number: PHHY2008BR16679

PATIENT
  Sex: Female
  Weight: 15 kg

DRUGS (3)
  1. ZADITEN [Suspect]
     Indication: BRONCHITIS
     Dosage: 1MG/1ML
  2. REDOXON [Concomitant]
     Dosage: 15 DROPS AFTERNOON AND 15 DROPS IN MORNING
  3. COBAMAMIDE [Concomitant]
     Dosage: 2 MG/DAY

REACTIONS (1)
  - PETECHIAE [None]
